FAERS Safety Report 5797114-0 (Version None)
Quarter: 2008Q2

REPORT INFORMATION
  Report Type: 
  Country: None (occurrence: None)
  Receive Date: 20080618
  Receipt Date: 20071022
  Transmission Date: 20081010
  Serious: Yes (Other)
  Sender: FDA-Public Use
  Company Number: 200717531US

PATIENT
  Age: 70 Year
  Sex: Female

DRUGS (9)
  1. LANTUS [Suspect]
     Indication: DIABETES MELLITUS
     Dosage: 20 U HS INJ
     Route: 042
     Dates: start: 20070101, end: 20070101
  2. LANTUS [Suspect]
     Indication: DIABETES MELLITUS
     Dosage: 22 U HS INJ
     Route: 042
     Dates: start: 20070101, end: 20070101
  3. LANTUS [Suspect]
     Indication: DIABETES MELLITUS
     Dosage: 24 U HS INJ
     Route: 042
     Dates: start: 20070101
  4. AMLDOIPINE, BENAZEPRIL HYDROCHLORIDE (LOTREL /01289101/) [Concomitant]
  5. LOPRESSOR [Concomitant]
  6. NORTRIPTYLINE HYDROCHLORIDE (NORTAB) [Concomitant]
  7. ESCITALOPRAM OXALATE (LEXAPRO) [Concomitant]
  8. LEVODOPA, CARBIDOPA, ENTACAPONE (STALEVO) [Concomitant]
  9. TIMOLOL MALEATE (TIMOPTIC) [Concomitant]

REACTIONS (4)
  - BLOOD GLUCOSE FLUCTUATION [None]
  - DRUG INEFFECTIVE [None]
  - HYPERGLYCAEMIA [None]
  - HYPOGLYCAEMIA [None]
